FAERS Safety Report 6905466-0 (Version None)
Quarter: 2010Q3

REPORT INFORMATION
  Report Type: 
  Country: None (occurrence: None)
  Receive Date: 20100804
  Receipt Date: 20100723
  Transmission Date: 20110219
  Serious: Yes (Other)
  Sender: FDA-Public Use
  Company Number: PHHY2010CA47001

PATIENT
  Sex: Male

DRUGS (5)
  1. ZOLEDRONIC ACID (RECLAST) [Suspect]
     Indication: OSTEOPOROSIS
  2. SPIRIVA [Concomitant]
     Dosage: UNK
     Dates: start: 20050101
  3. ADVAIR DISKUS 100/50 [Concomitant]
     Dosage: UNK
     Dates: start: 20050101
  4. VENTOLIN [Concomitant]
     Dosage: UNK
     Dates: start: 20050101
  5. RESTORIL [Concomitant]
     Dosage: UNK
     Dates: start: 20050101

REACTIONS (1)
  - TONGUE NEOPLASM MALIGNANT STAGE UNSPECIFIED [None]
